FAERS Safety Report 5831240-2 (Version None)
Quarter: 2008Q3

REPORT INFORMATION
  Report Type: 
  Country: None (occurrence: None)
  Receive Date: 20080801
  Receipt Date: 20080422
  Transmission Date: 20090109
  Serious: No
  Sender: FDA-Public Use
  Company Number: US-BRISTOL-MYERS SQUIBB COMPANY-14160139

PATIENT
  Age: 87 Year
  Sex: Male
  Weight: 68 kg

DRUGS (4)
  1. COUMADIN [Suspect]
     Dosage: 5 MG QD ON OTHER DAYS, 2.5MG QD ON SUNDAYS AND WEDNESDAYS.
     Dates: start: 20060101
  2. ALTACE [Concomitant]
  3. XALATAN [Concomitant]
  4. EYE DROPS [Concomitant]
     Indication: GLAUCOMA

REACTIONS (1)
  - NAIL DISCOLOURATION [None]
